FAERS Safety Report 23353816 (Version 1)
Quarter: 2024Q1

REPORT INFORMATION
  Report Type: Spontaneous
  Country: US (occurrence: US)
  Receive Date: 20240101
  Receipt Date: 20240101
  Transmission Date: 20240409
  Serious: No
  Sender: FDA-Public Use
  Company Number: US-PURDUE PHARMA-USA-2023-0306272

PATIENT
  Sex: Female
  Weight: 90.7 kg

DRUGS (2)
  1. OXYCODONE HYDROCHLORIDE [Suspect]
     Active Substance: OXYCODONE HYDROCHLORIDE
     Indication: Infusion site pain
     Dosage: UNKNOWN
     Route: 065
     Dates: start: 2023
  2. TRAMADOL [Suspect]
     Active Substance: TRAMADOL\TRAMADOL HYDROCHLORIDE
     Indication: Infusion site pain
     Dosage: UNKNOWN
     Route: 065
     Dates: start: 2023

REACTIONS (3)
  - Feeling abnormal [Unknown]
  - Vertigo [Unknown]
  - Drug ineffective [Unknown]
